FAERS Safety Report 14426853 (Version 1)
Quarter: 2018Q1

REPORT INFORMATION
  Report Type: Spontaneous
  Country: US (occurrence: US)
  Receive Date: 20180123
  Receipt Date: 20180123
  Transmission Date: 20180509
  Serious: Yes (Hospitalization, Other)
  Sender: FDA-Public Use
  Company Number: US-GLAXOSMITHKLINE-US2018010143

PATIENT
  Age: 46 Year
  Sex: Female

DRUGS (13)
  1. SALAGEN [Concomitant]
     Active Substance: PILOCARPINE HYDROCHLORIDE
  2. ZYVOX [Concomitant]
     Active Substance: LINEZOLID
  3. WARFARIN [Concomitant]
     Active Substance: WARFARIN
  4. VELETRI [Concomitant]
     Active Substance: EPOPROSTENOL
  5. REVATIO [Concomitant]
     Active Substance: SILDENAFIL CITRATE
  6. CALCIUM [Concomitant]
     Active Substance: CALCIUM
  7. IRON [Concomitant]
     Active Substance: IRON
  8. BENLYSTA [Suspect]
     Active Substance: BELIMUMAB
     Indication: SYSTEMIC LUPUS ERYTHEMATOSUS
     Dosage: UNK, CYC
     Route: 042
  9. GABAPENTIN. [Concomitant]
     Active Substance: GABAPENTIN
  10. PREDNISONE. [Concomitant]
     Active Substance: PREDNISONE
  11. TOPAMAX [Concomitant]
     Active Substance: TOPIRAMATE
  12. MAGNESIUM [Concomitant]
     Active Substance: MAGNESIUM
  13. PRILOSEC [Concomitant]
     Active Substance: OMEPRAZOLE MAGNESIUM

REACTIONS (3)
  - Pneumonia [Unknown]
  - Arthritis bacterial [Unknown]
  - Drug dose omission [Unknown]

NARRATIVE: CASE EVENT DATE: 201708
